FAERS Safety Report 18164373 (Version 2)
Quarter: 2020Q4

REPORT INFORMATION
  Report Type: Spontaneous
  Country: US (occurrence: US)
  Receive Date: 20200818
  Receipt Date: 20201005
  Transmission Date: 20210113
  Serious: No
  Sender: FDA-Public Use
  Company Number: US-009507513-2007USA010989

PATIENT
  Age: 29 Year
  Sex: Male

DRUGS (4)
  1. PIPERACILLIN AND TAZOBACTAM [Concomitant]
     Active Substance: PIPERACILLIN SODIUM\TAZOBACTAM SODIUM
     Dosage: 3.375 GRAM, Q6H
     Route: 042
  2. HEPARIN [Concomitant]
     Active Substance: HEPARIN SODIUM
     Dosage: DRIP TARGET ANTI-XA LEVEL 0.2?0.5
  3. WARFARIN [Concomitant]
     Active Substance: WARFARIN
     Dosage: UNK
  4. INVANZ [Suspect]
     Active Substance: ERTAPENEM SODIUM
     Indication: ABDOMINAL INFECTION
     Dosage: 1 GRAM, Q24H
     Route: 042

REACTIONS (2)
  - Product use in unapproved indication [Unknown]
  - No adverse event [Unknown]
